FAERS Safety Report 15789401 (Version 1)
Quarter: 2019Q1

REPORT INFORMATION
  Report Type: Spontaneous
  Country: US (occurrence: US)
  Receive Date: 20190104
  Receipt Date: 20190104
  Transmission Date: 20190417
  Serious: No
  Sender: FDA-Public Use
  Company Number: US-GLAXOSMITHKLINE-US2018231029

PATIENT
  Sex: Male

DRUGS (2)
  1. FLOVENT [Suspect]
     Active Substance: FLUTICASONE PROPIONATE
     Indication: PRODUCT USED FOR UNKNOWN INDICATION
     Dosage: UNK
  2. ADVAIR HFA [Suspect]
     Active Substance: FLUTICASONE PROPIONATE\SALMETEROL XINAFOATE
     Indication: PRODUCT USED FOR UNKNOWN INDICATION
     Dosage: 2 PUFF(S), BID
     Dates: start: 2015

REACTIONS (7)
  - Sinusitis [Recovered/Resolved]
  - Wheezing [Unknown]
  - Ill-defined disorder [Unknown]
  - Nasopharyngitis [Unknown]
  - Asthma [Recovered/Resolved]
  - Product administered to patient of inappropriate age [Unknown]
  - Dyspnoea [Recovered/Resolved]
